FAERS Safety Report 8610277-4 (Version None)
Quarter: 2012Q3

REPORT INFORMATION
  Report Type: 
  Country: None (occurrence: None)
  Receive Date: 20120810
  Receipt Date: 20120810
  Transmission Date: 20120928
  Serious: Yes (Hospitalization)
  Sender: FDA-Public Use
  Company Number: None

PATIENT
  Age: 67 Year
  Sex: Male
  Weight: 73.4827 kg

DRUGS (2)
  1. PEGASYS/RIBAVIRIN, 180 MCG/200 MG [Suspect]
     Indication: HEPATITIS C
     Dosage: 180 MICROGRAM/1000 MG, SQ WEEKLY, PO DAILY
     Route: 050
     Dates: start: 20120110, end: 20120403
  2. TELAPREVIR, 375 MG VERTEX [Suspect]
     Indication: HEPATITIS C
     Dosage: 2 TAB, TID, PO
     Route: 048
     Dates: start: 20120110, end: 20120403

REACTIONS (21)
  - EOSINOPHILIA [None]
  - ASTHENIA [None]
  - OEDEMA PERIPHERAL [None]
  - HYPERSENSITIVITY [None]
  - CONFUSIONAL STATE [None]
  - HALLUCINATION [None]
  - RASH [None]
  - CHILLS [None]
  - STOMATITIS [None]
  - MUCOSAL HAEMORRHAGE [None]
  - MUCOSAL INFLAMMATION [None]
  - GENERALISED OEDEMA [None]
  - MALNUTRITION [None]
  - NOSOCOMIAL INFECTION [None]
  - PYREXIA [None]
  - HEPATITIS [None]
  - BLOOD IMMUNOGLOBULIN E INCREASED [None]
  - SEPSIS [None]
  - PNEUMONIA [None]
  - PRODUCTIVE COUGH [None]
  - CLOSTRIDIUM DIFFICILE COLITIS [None]
